FAERS Safety Report 4928997-1 (Version None)
Quarter: 2006Q1

REPORT INFORMATION
  Report Type: 
  Country: None (occurrence: None)
  Receive Date: 20060301
  Receipt Date: 20060220
  Transmission Date: 20060701
  Serious: Yes (Hospitalization, Disabling, Other)
  Sender: FDA-Public Use
  Company Number: 2006PK00417

PATIENT
  Age: 20427 Day

DRUGS (1)
  1. GEFITINIB [Suspect]
     Indication: NON-SMALL CELL LUNG CANCER
     Route: 048
     Dates: start: 20041118, end: 20060117

REACTIONS (4)
  - MALIGNANT NEOPLASM OF CHOROID [None]
  - METASTASES TO BONE [None]
  - METASTASIS [None]
  - RETINAL DETACHMENT [None]
